FAERS Safety Report 24530510 (Version 1)
Quarter: 2024Q4

REPORT INFORMATION
  Report Type: Spontaneous
  Country: CZ (occurrence: CZ)
  Receive Date: 20241021
  Receipt Date: 20241021
  Transmission Date: 20250114
  Serious: Yes (Life-Threatening, Hospitalization)
  Sender: MYLAN
  Company Number: CZ-MYLANLABS-2024M1095563

PATIENT
  Age: 3 Decade
  Sex: Female

DRUGS (18)
  1. LAMOTRIGINE [Suspect]
     Active Substance: LAMOTRIGINE
     Indication: Temporal lobe epilepsy
     Dosage: UNK
     Route: 065
  2. LAMOTRIGINE [Suspect]
     Active Substance: LAMOTRIGINE
     Dosage: UNK, DOSE INCREASED
     Route: 065
  3. MIRTAZAPINE [Suspect]
     Active Substance: MIRTAZAPINE
     Indication: Schizophrenia
     Dosage: UNK
     Route: 065
  4. VENLAFAXINE [Suspect]
     Active Substance: VENLAFAXINE HYDROCHLORIDE
     Indication: Schizophrenia
     Dosage: UNK
     Route: 065
  5. RISPERIDONE [Suspect]
     Active Substance: RISPERIDONE
     Indication: Schizophrenia
     Dosage: UNK
     Route: 065
  6. RISPERIDONE [Suspect]
     Active Substance: RISPERIDONE
     Dosage: UNK
     Route: 065
  7. ARIPIPRAZOLE [Suspect]
     Active Substance: ARIPIPRAZOLE
     Indication: Schizophrenia
     Dosage: UNK
     Route: 065
  8. ARIPIPRAZOLE [Suspect]
     Active Substance: ARIPIPRAZOLE
     Dosage: UNK
     Route: 065
  9. QUETIAPINE [Suspect]
     Active Substance: QUETIAPINE
     Indication: Schizophrenia
     Dosage: UNK
     Route: 065
  10. OLANZAPINE [Suspect]
     Active Substance: OLANZAPINE
     Indication: Schizophrenia
     Dosage: UNK
     Route: 065
  11. OLANZAPINE [Suspect]
     Active Substance: OLANZAPINE
     Dosage: UNK
     Route: 065
  12. AGOMELATINE [Suspect]
     Active Substance: AGOMELATINE
     Indication: Schizophrenia
     Dosage: UNK
     Route: 065
  13. SULPIRIDE [Suspect]
     Active Substance: SULPIRIDE
     Indication: Schizophrenia
     Dosage: UNK
     Route: 065
  14. FLUPENTIXOL [Suspect]
     Active Substance: FLUPENTIXOL
     Indication: Schizophrenia
     Dosage: UNK
     Route: 065
  15. TRAZODONE [Suspect]
     Active Substance: TRAZODONE HYDROCHLORIDE
     Indication: Schizophrenia
     Dosage: UNK
     Route: 065
  16. CHLORPROTHIXENE [Suspect]
     Active Substance: CHLORPROTHIXENE
     Indication: Schizophrenia
     Dosage: UNK
     Route: 065
  17. OXAZEPAM [Suspect]
     Active Substance: OXAZEPAM
     Indication: Schizophrenia
     Dosage: UNK
     Route: 065
  18. CARIPRAZINE [Concomitant]
     Active Substance: CARIPRAZINE
     Indication: Schizophrenia
     Dosage: UNK
     Route: 065

REACTIONS (2)
  - Drug ineffective [Unknown]
  - Maternal exposure during pregnancy [Unknown]
